FAERS Safety Report 7423080-8 (Version None)
Quarter: 2011Q2

REPORT INFORMATION
  Report Type: 
  Country: None (occurrence: None)
  Receive Date: 20110419
  Receipt Date: 20110411
  Transmission Date: 20111010
  Serious: Yes (Other)
  Sender: FDA-Public Use
  Company Number: US-BRACCO-006102

PATIENT
  Sex: Female

DRUGS (7)
  1. CALCIUM [Concomitant]
  2. TRAMADOL [Concomitant]
  3. ATENOLOL [Concomitant]
  4. PREVACID [Concomitant]
  5. MULTI-VITAMINS [Concomitant]
  6. MULTIHANCE [Suspect]
     Indication: ANGIOPATHY
     Route: 042
     Dates: start: 20110411, end: 20110411
  7. MULTIHANCE [Suspect]
     Indication: NUCLEAR MAGNETIC RESONANCE IMAGING
     Route: 042
     Dates: start: 20110411, end: 20110411

REACTIONS (5)
  - URINARY INCONTINENCE [None]
  - NAUSEA [None]
  - LOSS OF CONSCIOUSNESS [None]
  - PULSELESS ELECTRICAL ACTIVITY [None]
  - CARDIO-RESPIRATORY ARREST [None]
